FAERS Safety Report 18509985 (Version 2)
Quarter: 2020Q4

REPORT INFORMATION
  Report Type: Report from Study
  Country: FR (occurrence: FR)
  Receive Date: 20201117
  Receipt Date: 20201203
  Transmission Date: 20210114
  Serious: Yes (Death, Hospitalization)
  Sender: FDA-Public Use
  Company Number: FR-BIOVITRUM-2020FR6398

PATIENT
  Age: 68 Year
  Sex: Male

DRUGS (1)
  1. KINERET [Suspect]
     Active Substance: ANAKINRA
     Indication: CORONAVIRUS INFECTION
     Dosage: 100 MG/0.67 ML
     Route: 042
     Dates: start: 20200411, end: 20200418

REACTIONS (4)
  - Multiple organ dysfunction syndrome [Fatal]
  - Oxygen saturation decreased [Not Recovered/Not Resolved]
  - Pulmonary embolism [Fatal]
  - Pseudomonas infection [Not Recovered/Not Resolved]

NARRATIVE: CASE EVENT DATE: 20200413
